FAERS Safety Report 10174213 (Version 1)
Quarter: 2014Q2

REPORT INFORMATION
  Report Type: Spontaneous
  Country: US (occurrence: US)
  Receive Date: 20140515
  Receipt Date: 20140515
  Transmission Date: 20141212
  Serious: Yes (Death)
  Sender: FDA-Public Use
  Company Number: US-ACTAVIS-2014-09704

PATIENT
  Age: 2 Year
  Sex: Male

DRUGS (1)
  1. FENTANYL UNKNOWN STRENGTH (WATSON LABORATORIES) [Suspect]
     Indication: ACCIDENTAL EXPOSURE TO PRODUCT BY CHILD
     Dosage: UNK
     Route: 062

REACTIONS (3)
  - Death [Fatal]
  - Accidental exposure to product by child [Fatal]
  - Accidental overdose [Fatal]
